FAERS Safety Report 8080764-9 (Version None)
Quarter: 2012Q1

REPORT INFORMATION
  Report Type: 
  Country: None (occurrence: None)
  Receive Date: 20120130
  Receipt Date: 20120126
  Transmission Date: 20120608
  Serious: No
  Sender: FDA-Public Use
  Company Number: PHEH2012US002426

PATIENT
  Sex: Female

DRUGS (6)
  1. OXYCODONE HCL [Concomitant]
     Dosage: UNK UKN, UNK
  2. COUMADIN [Concomitant]
     Dosage: UNK UKN, UNK
  3. ALDACTONE [Concomitant]
     Dosage: UNK UKN, UNK
  4. LEVOTHYROXINE SODIUM [Concomitant]
     Dosage: UNK UKN, UNK
  5. REMODULIN [Concomitant]
     Dosage: UNK UKN, UNK
  6. TASIGNA [Suspect]
     Indication: CHRONIC MYELOID LEUKAEMIA
     Dosage: 200 MG, DAILY
     Route: 048
     Dates: start: 20120112

REACTIONS (3)
  - ARTHRALGIA [None]
  - HEADACHE [None]
  - ABDOMINAL PAIN [None]
